FAERS Safety Report 7150373-4 (Version None)
Quarter: 2010Q4

REPORT INFORMATION
  Report Type: 
  Country: None (occurrence: None)
  Receive Date: 20101123
  Receipt Date: 20101109
  Transmission Date: 20110411
  Serious: Yes (Death)
  Sender: FDA-Public Use
  Company Number: 011843

PATIENT
  Sex: Male

DRUGS (2)
  1. BUSULFEX [Suspect]
     Indication: STEM CELL TRANSPLANT
  2. FLUDARABINE PHOSPHATE [Concomitant]

REACTIONS (1)
  - MYELODYSPLASTIC SYNDROME [None]
